FAERS Safety Report 8193991-7 (Version None)
Quarter: 2012Q1

REPORT INFORMATION
  Report Type: 
  Country: None (occurrence: None)
  Receive Date: 20120308
  Receipt Date: 20120228
  Transmission Date: 20120608
  Serious: Yes (Death, Life-Threatening)
  Sender: FDA-Public Use
  Company Number: JP-AMGEN-JPNCT2011006395

PATIENT
  Age: 49 Year
  Sex: Male
  Weight: 67 kg

DRUGS (8)
  1. FLUOROURACIL [Concomitant]
     Indication: COLORECTAL CANCER
     Dosage: 750 MG, UNK
     Route: 040
     Dates: start: 20110112, end: 20110113
  2. ISOVORIN [Concomitant]
     Indication: COLORECTAL CANCER
     Dosage: 200 MG, UNK
     Route: 041
     Dates: start: 20110112, end: 20110113
  3. KYTRIL [Concomitant]
     Dosage: UNK
     Route: 042
  4. DECADRON [Concomitant]
     Dosage: UNK
     Route: 042
  5. IRINOTECAN HCL [Suspect]
     Indication: COLORECTAL CANCER
     Dosage: 280 MG, Q2WK
     Route: 041
     Dates: start: 20110112, end: 20110112
  6. SOLU-MEDROL [Concomitant]
     Dosage: UNK
     Route: 042
  7. PANITUMUMAB [Suspect]
     Indication: COLORECTAL CANCER
     Dosage: 430 MG, Q2WK
     Route: 041
     Dates: start: 20110112, end: 20110112
  8. FLUOROURACIL [Concomitant]
     Dosage: 2250 MG, Q2WK
     Route: 041
     Dates: start: 20110112, end: 20110114

REACTIONS (2)
  - INTERSTITIAL LUNG DISEASE [None]
  - RESPIRATORY FAILURE [None]
